FAERS Safety Report 18724538 (Version 12)
Quarter: 2024Q1

REPORT INFORMATION
  Report Type: Spontaneous
  Country: US (occurrence: US)
  Receive Date: 20210111
  Receipt Date: 20240207
  Transmission Date: 20240410
  Serious: Yes (Hospitalization, Other)
  Sender: FDA-Public Use
  Company Number: US-PFIZER INC-2021013532

PATIENT
  Age: 67 Year
  Sex: Female

DRUGS (8)
  1. XELJANZ [Suspect]
     Active Substance: TOFACITINIB CITRATE
     Indication: Rheumatoid arthritis
     Dosage: 5 MG
  2. XELJANZ [Suspect]
     Active Substance: TOFACITINIB CITRATE
     Dosage: 5 MG, 2X/DAY
     Dates: end: 202301
  3. XELJANZ [Suspect]
     Active Substance: TOFACITINIB CITRATE
     Dosage: 5 MG, 2X/DAY
     Route: 048
     Dates: start: 2023, end: 202310
  4. ASPIRIN [Concomitant]
     Active Substance: ASPIRIN
     Dosage: UNK
  5. CHOLESTEROL [Concomitant]
     Active Substance: CHOLESTEROL
     Dosage: UNK
  6. THYROID [Concomitant]
     Active Substance: LEVOTHYROXINE\LIOTHYRONINE
     Dosage: UNK
  7. SYNTHROID [Concomitant]
     Active Substance: LEVOTHYROXINE SODIUM
  8. ROSUVASTATIN [Concomitant]
     Active Substance: ROSUVASTATIN
     Dosage: UNK

REACTIONS (11)
  - Seizure [Recovering/Resolving]
  - Cerebrovascular accident [Unknown]
  - Dementia [Not Recovered/Not Resolved]
  - Product prescribing error [Unknown]
  - Peripheral swelling [Unknown]
  - Urinary tract infection [Unknown]
  - Walking disability [Not Recovered/Not Resolved]
  - COVID-19 [Unknown]
  - Therapeutic product effect decreased [Unknown]
  - Herpes zoster [Recovering/Resolving]
  - Speech disorder [Unknown]

NARRATIVE: CASE EVENT DATE: 20170101
